FAERS Safety Report 5821267-9 (Version None)
Quarter: 2008Q3

REPORT INFORMATION
  Report Type: 
  Country: None (occurrence: None)
  Receive Date: 20080724
  Receipt Date: 20080718
  Transmission Date: 20090109
  Serious: Yes (Hospitalization, Other)
  Sender: FDA-Public Use
  Company Number: HQWYE230306JAN06

PATIENT
  Sex: Male

DRUGS (34)
  1. SIROLIMUS [Suspect]
     Indication: PROPHYLAXIS AGAINST TRANSPLANT REJECTION
     Route: 048
     Dates: start: 20051123, end: 20061123
  2. SIROLIMUS [Suspect]
     Route: 048
     Dates: start: 20051124, end: 20060104
  3. PREDNISONE TAB [Suspect]
     Indication: PROPHYLAXIS AGAINST TRANSPLANT REJECTION
     Route: 048
     Dates: start: 20051003, end: 20051122
  4. PREDNISONE TAB [Suspect]
     Route: 048
     Dates: start: 20051123, end: 20060106
  5. PREDNISONE TAB [Suspect]
     Route: 048
     Dates: start: 20060107, end: 20060110
  6. PREDNISONE TAB [Suspect]
     Route: 048
     Dates: start: 20060111, end: 20060131
  7. PREDNISONE TAB [Suspect]
     Route: 048
     Dates: start: 20060201, end: 20060201
  8. PREDNISONE TAB [Suspect]
     Route: 048
     Dates: start: 20060225, end: 20060101
  9. PREDNISONE TAB [Suspect]
     Route: 048
     Dates: start: 20060324, end: 20060101
  10. PREDNISONE TAB [Suspect]
     Route: 048
     Dates: start: 20060419
  11. PREDNISONE TAB [Suspect]
     Route: 048
     Dates: start: 20060201, end: 20060224
  12. PREDNISONE TAB [Suspect]
     Route: 048
     Dates: start: 20060225, end: 20060323
  13. PREDNISONE TAB [Suspect]
     Route: 048
     Dates: start: 20060324, end: 20060410
  14. PREDNISONE TAB [Suspect]
     Route: 048
     Dates: start: 20060411
  15. ACYCLOVIR [Concomitant]
     Route: 065
     Dates: start: 20051123
  16. BACTRIM [Concomitant]
     Route: 065
     Dates: start: 20051031
  17. PEPCID [Concomitant]
     Route: 065
     Dates: start: 20050928
  18. METFORMIN [Concomitant]
     Dosage: NOT SPECIFIED
     Dates: start: 20050112
  19. VALCYTE [Concomitant]
     Dosage: NOT SPECIFIED
     Dates: start: 20051231
  20. PREVACID [Concomitant]
     Dosage: NOT SPECIFIED
     Dates: start: 20051031, end: 20060411
  21. ULTRAM [Concomitant]
     Dosage: NOT SPECIFIED
  22. INSULIN [Concomitant]
     Dosage: NOT SPECIFIED
  23. PROTONIX [Concomitant]
     Dosage: NOT SPECIFIED
  24. ATARAX [Concomitant]
  25. MYCOPHENOLATE MOFETIL [Suspect]
     Indication: PROPHYLAXIS AGAINST TRANSPLANT REJECTION
     Dosage: UNKNOWN
     Route: 048
     Dates: start: 20051012
  26. MYCOPHENOLATE MOFETIL [Suspect]
     Route: 048
     Dates: start: 20051123, end: 20051220
  27. MYCOPHENOLATE MOFETIL [Suspect]
     Route: 048
     Dates: start: 20051221, end: 20060118
  28. TACROLIMUS [Suspect]
     Indication: PROPHYLAXIS AGAINST TRANSPLANT REJECTION
     Dosage: UNKNOWN
     Route: 048
     Dates: start: 20051012
  29. TACROLIMUS [Suspect]
     Route: 048
     Dates: start: 20060105, end: 20060106
  30. TACROLIMUS [Suspect]
     Route: 048
     Dates: start: 20060107, end: 20060110
  31. TACROLIMUS [Suspect]
     Route: 048
     Dates: start: 20060111, end: 20060131
  32. TACROLIMUS [Suspect]
     Route: 048
     Dates: start: 20060201, end: 20060223
  33. TACROLIMUS [Suspect]
     Route: 048
     Dates: start: 20060224, end: 20060307
  34. TACROLIMUS [Suspect]
     Route: 048
     Dates: start: 20060308, end: 20060418

REACTIONS (9)
  - ABDOMINAL PAIN UPPER [None]
  - BILE DUCT OBSTRUCTION [None]
  - CHOLANGITIS [None]
  - CLOSTRIDIUM DIFFICILE COLITIS [None]
  - COUGH [None]
  - DYSPNOEA [None]
  - LIVER TRANSPLANT REJECTION [None]
  - THROMBOSIS [None]
  - UPPER RESPIRATORY TRACT INFECTION [None]
